FAERS Safety Report 7392102-5 (Version None)
Quarter: 2011Q1

REPORT INFORMATION
  Report Type: 
  Country: None (occurrence: None)
  Receive Date: 20110323
  Receipt Date: 20110307
  Transmission Date: 20110831
  Serious: Yes (Other)
  Sender: FDA-Public Use
  Company Number: 2011P1004818

PATIENT
  Age: 44 Year
  Sex: Female
  Weight: 49.8957 kg

DRUGS (3)
  1. HIGH BLOOD PRESSURE MEDICATION [Concomitant]
  2. TRIAMCINOLONE ACETONIDE [Suspect]
     Indication: DERMATITIS
     Dosage: BID; TOP, BID; TOP
     Route: 061
     Dates: start: 20110201, end: 20110201
  3. TRIAMCINOLONE ACETONIDE [Suspect]
     Indication: DERMATITIS
     Dosage: BID; TOP, BID; TOP
     Route: 061
     Dates: start: 20110204, end: 20110219

REACTIONS (5)
  - RASH [None]
  - SKIN WRINKLING [None]
  - DRY SKIN [None]
  - SKIN DISORDER [None]
  - SKIN EXFOLIATION [None]
